FAERS Safety Report 10157871 (Version 1)
Quarter: 2014Q2

REPORT INFORMATION
  Report Type: Spontaneous
  Country: JP (occurrence: JP)
  Receive Date: 20140507
  Receipt Date: 20140507
  Transmission Date: 20141212
  Serious: Yes (Other)
  Sender: FDA-Public Use
  Company Number: JP-BAYER-2014-067439

PATIENT
  Age: 80 Year
  Sex: Female

DRUGS (1)
  1. STIVARGA [Suspect]
     Dosage: UNKNOWN DOSE (ON FOR 1 WEEK AND OFF FOR 1 WEEK)
     Route: 048

REACTIONS (1)
  - Hypothermia [None]
